FAERS Safety Report 4906684-3 (Version None)
Quarter: 2006Q1

REPORT INFORMATION
  Report Type: 
  Country: None (occurrence: None)
  Receive Date: 20060113
  Receipt Date: 20050401
  Transmission Date: 20060701
  Serious: Yes (Hospitalization)
  Sender: FDA-Public Use
  Company Number: HQWYE642804APR05

PATIENT
  Age: 45 Year
  Sex: Female
  Weight: 54.48 kg

DRUGS (5)
  1. PREMPRO [Suspect]
     Indication: MENOPAUSAL SYMPTOMS
     Dosage: 0.625MG / 2.5 MG
     Dates: start: 20030901
  2. EPIVIR [Concomitant]
  3. SUSTIVA [Concomitant]
  4. ZERIT [Concomitant]
  5. VITAMIN B COMPLEX (CALCIUM PANTOTHENATE/NICOTINAMIDE/PYRIDOXINE) [Concomitant]

REACTIONS (1)
  - PULMONARY THROMBOSIS [None]
